FAERS Safety Report 8288883-9 (Version None)
Quarter: 2012Q2

REPORT INFORMATION
  Report Type: 
  Country: None (occurrence: None)
  Receive Date: 20120412
  Receipt Date: 20120328
  Transmission Date: 20120825
  Serious: Yes (Death)
  Sender: FDA-Public Use
  Company Number: FK201200965

PATIENT
  Age: 3 Year

DRUGS (4)
  1. CYCLOPHOSPHAMIDE [Suspect]
     Indication: MEDULLOBLASTOMA
  2. ETOPOSIDE [Suspect]
     Indication: MEDULLOBLASTOMA
  3. CARBOPLATIN [Suspect]
     Indication: MEDULLOBLASTOMA
  4. THIOTEPA [Suspect]
     Indication: MEDULLOBLASTOMA

REACTIONS (6)
  - PNEUMOTHORAX [None]
  - PNEUMOMEDIASTINUM [None]
  - ACUTE RESPIRATORY DISTRESS SYNDROME [None]
  - PLATELET COUNT DECREASED [None]
  - HYPERCAPNIA [None]
  - RESPIRATORY FAILURE [None]
